FAERS Safety Report 15186419 (Version 1)
Quarter: 2018Q3

REPORT INFORMATION
  Report Type: Report from Study
  Country: US (occurrence: US)
  Receive Date: 20180723
  Receipt Date: 20180723
  Transmission Date: 20181010
  Serious: No
  Sender: FDA-Public Use
  Company Number: US-EXELIXIS-CABO-18011996

PATIENT
  Age: 74 Year
  Sex: Male

DRUGS (11)
  1. METOPROLOL SUCCINATE. [Concomitant]
     Active Substance: METOPROLOL SUCCINATE
  2. SALINE [Concomitant]
     Active Substance: SODIUM CHLORIDE
  3. IBUPROFEN. [Concomitant]
     Active Substance: IBUPROFEN
  4. HYDROCODONE [Concomitant]
     Active Substance: HYDROCODONE
  5. GABAPENTIN. [Concomitant]
     Active Substance: GABAPENTIN
  6. LIDODERM [Concomitant]
     Active Substance: LIDOCAINE
  7. SODIUM CHLORIDE. [Concomitant]
     Active Substance: SODIUM CHLORIDE
  8. AMLODIPINE [Concomitant]
     Active Substance: AMLODIPINE BESYLATE
  9. CABOMETYX [Suspect]
     Active Substance: CABOZANTINIB S-MALATE
     Indication: RENAL CANCER
     Dosage: 60 MG, QD
     Route: 048
     Dates: start: 20171019, end: 20171122
  10. ALFUZOSIN [Concomitant]
     Active Substance: ALFUZOSIN
  11. MELATONIN [Concomitant]
     Active Substance: MELATONIN

REACTIONS (1)
  - Nephrotic syndrome [Unknown]

NARRATIVE: CASE EVENT DATE: 20171122
